FAERS Safety Report 5334400-2 (Version None)
Quarter: 2007Q2

REPORT INFORMATION
  Report Type: 
  Country: None (occurrence: None)
  Receive Date: 20070525
  Receipt Date: 20070516
  Transmission Date: 20071010
  Serious: Yes (Hospitalization)
  Sender: FDA-Public Use
  Company Number: PHBS2007NZ08167

PATIENT
  Age: 26 Year
  Sex: Male

DRUGS (1)
  1. CLOZARIL [Suspect]
     Indication: SCHIZOPHRENIA
     Dosage: 200 MG/DAY
     Route: 048
     Dates: start: 20040521

REACTIONS (9)
  - C-REACTIVE PROTEIN INCREASED [None]
  - MYALGIA [None]
  - NEUTROPHIL COUNT INCREASED [None]
  - PHARYNGOLARYNGEAL PAIN [None]
  - RASH PRURITIC [None]
  - RED BLOOD CELL SEDIMENTATION RATE INCREASED [None]
  - TONSILLITIS [None]
  - VASCULITIS [None]
  - WHITE BLOOD CELL COUNT INCREASED [None]
